FAERS Safety Report 5283202-4 (Version None)
Quarter: 2007Q2

REPORT INFORMATION
  Report Type: 
  Country: None (occurrence: None)
  Receive Date: 20070402
  Receipt Date: 20070329
  Transmission Date: 20071010
  Serious: Yes (Hospitalization, Disabling)
  Sender: FDA-Public Use
  Company Number: JP-JPN-A200700032

PATIENT
  Age: 87 Year
  Sex: Male
  Weight: 60 kg

DRUGS (10)
  1. VALTREX [Suspect]
     Indication: HERPES ZOSTER
     Dosage: 1000MG THREE TIMES PER DAY
     Route: 048
     Dates: start: 20061222, end: 20061225
  2. LOXONIN [Concomitant]
     Indication: HERPES ZOSTER
     Dosage: 180MG PER DAY
     Route: 048
     Dates: start: 20061222, end: 20061225
  3. SELBEX [Concomitant]
     Indication: HERPES ZOSTER
     Dosage: 150MG PER DAY
     Route: 048
     Dates: start: 20061222, end: 20061225
  4. MUCOSTA [Concomitant]
     Dosage: 300MG PER DAY
     Route: 048
  5. ALLOZYM [Concomitant]
     Dosage: 100MG PER DAY
     Route: 048
  6. NORVASC [Concomitant]
     Dosage: 5MG PER DAY
     Route: 048
  7. ANPLAG [Concomitant]
     Dosage: 300MG PER DAY
     Route: 048
  8. KERLONG [Concomitant]
     Dosage: 10MG PER DAY
     Route: 048
  9. PRERAN [Concomitant]
     Dosage: 1MG PER DAY
     Route: 048
  10. UNKNOWN DRUG [Concomitant]

REACTIONS (9)
  - DECREASED ACTIVITY [None]
  - DEHYDRATION [None]
  - DEPRESSED LEVEL OF CONSCIOUSNESS [None]
  - DIZZINESS [None]
  - DYSARTHRIA [None]
  - DYSLALIA [None]
  - NERVOUS SYSTEM DISORDER [None]
  - PAIN [None]
  - RENAL FAILURE [None]
